FAERS Safety Report 9596825 (Version 2)
Quarter: 2013Q4

REPORT INFORMATION
  Report Type: Report from Study
  Country: JP (occurrence: JP)
  Receive Date: 20131004
  Receipt Date: 20131004
  Transmission Date: 20140711
  Serious: Yes (Other)
  Sender: FDA-Public Use
  Company Number: JP-VERTEX PHARMACEUTICALS INC-AE-2012-004967

PATIENT
  Age: 62 Year
  Sex: Female

DRUGS (10)
  1. VX-950 (TELAPREVIR) [Suspect]
     Indication: HEPATITIS C
     Dosage: 1500 MG, QD
     Route: 048
     Dates: start: 20120207, end: 20120212
  2. PEGINTERFERON [Suspect]
     Indication: CHRONIC HEPATITIS C
     Dosage: 1.5 ?G/KG, QW
     Route: 058
     Dates: start: 20120207, end: 20120214
  3. RIBAVIRIN [Suspect]
     Indication: CHRONIC HEPATITIS C
     Dosage: 600 MG, QD
     Route: 048
     Dates: start: 20120207, end: 20120221
  4. MICARDIS [Concomitant]
     Dosage: 20 MG, QD
     Route: 048
     Dates: end: 20120212
  5. ALCENOL [Concomitant]
     Dosage: 25 MG, QD
     Route: 048
     Dates: end: 20120212
  6. MERCAZOLE [Concomitant]
     Dosage: 5 MG, QD
     Route: 048
     Dates: end: 20120212
  7. EPADEL-S [Concomitant]
     Dosage: 1800 MG, QD
     Route: 048
     Dates: end: 20120221
  8. AMLODIPINE OD [Concomitant]
     Dosage: 5 MG, QD
     Route: 048
     Dates: end: 20120212
  9. LIVALO [Concomitant]
     Dosage: 1 MG, QD
     Route: 048
     Dates: end: 20120221
  10. FEROTYM [Concomitant]
     Dosage: 100 MG, QD
     Route: 048
     Dates: end: 20120221

REACTIONS (1)
  - Bradycardia [Recovered/Resolved]
